FAERS Safety Report 5137173-1 (Version None)
Quarter: 2006Q4

REPORT INFORMATION
  Report Type: 
  Country: None (occurrence: None)
  Receive Date: 20061030
  Receipt Date: 20050907
  Transmission Date: 20070319
  Serious: No
  Sender: FDA-Public Use
  Company Number: US-GLAXOSMITHKLINE-A0573305A

PATIENT
  Sex: Male

DRUGS (7)
  1. ADVAIR HFA [Suspect]
     Indication: CHRONIC OBSTRUCTIVE PULMONARY DISEASE
     Dosage: 1PUFF TWICE PER DAY
     Route: 055
  2. SEREVENT [Suspect]
     Indication: CHRONIC OBSTRUCTIVE PULMONARY DISEASE
     Route: 055
  3. FUROSEMIDE [Concomitant]
  4. TRUSOPT [Concomitant]
     Indication: EYE PAIN
  5. PILOCARPINE [Concomitant]
     Dates: start: 20050701
  6. LUMIGAN [Concomitant]
  7. CELEBREX [Concomitant]

REACTIONS (1)
  - INTRAOCULAR PRESSURE INCREASED [None]
